FAERS Safety Report 6591309-4 (Version None)
Quarter: 2010Q1

REPORT INFORMATION
  Report Type: 
  Country: None (occurrence: None)
  Receive Date: 20100219
  Receipt Date: 20100209
  Transmission Date: 20100710
  Serious: Yes (Other)
  Sender: FDA-Public Use
  Company Number: US-PFIZER INC-2010017129

PATIENT
  Sex: Female

DRUGS (2)
  1. CELEBREX [Suspect]
  2. VIVELLE-DOT [Suspect]

REACTIONS (3)
  - HAEMORRHAGE [None]
  - HOT FLUSH [None]
  - HYPERHIDROSIS [None]
